FAERS Safety Report 8088467-1 (Version None)
Quarter: 2012Q1

REPORT INFORMATION
  Report Type: 
  Country: None (occurrence: None)
  Receive Date: 20120128
  Receipt Date: 20110418
  Transmission Date: 20120608
  Serious: No
  Sender: FDA-Public Use
  Company Number: US-ABBOTT-11P-163-0719887-00

PATIENT
  Age: 53 Year
  Sex: Female

DRUGS (10)
  1. ALLEGRA [Concomitant]
     Indication: PRODUCT USED FOR UNKNOWN INDICATION
     Dosage: EVERY 12 HOURS
  2. ASPIRIN [Concomitant]
     Indication: PRODUCT USED FOR UNKNOWN INDICATION
     Route: 048
  3. XANAX [Concomitant]
     Indication: ANXIETY
     Route: 048
  4. NEURONTIN [Concomitant]
     Indication: NERVE INJURY
     Route: 048
  5. PREMARIN [Concomitant]
     Indication: HORMONE REPLACEMENT THERAPY
     Route: 048
  6. HUMIRA [Suspect]
     Indication: RHEUMATOID ARTHRITIS
     Dates: start: 20101001
  7. NASONEX [Concomitant]
     Indication: PRODUCT USED FOR UNKNOWN INDICATION
  8. ETODOLAC [Concomitant]
     Indication: ARTHRITIS
     Route: 048
  9. NEXIUM [Concomitant]
     Indication: DYSPEPSIA
     Route: 048
  10. PAMELOR [Concomitant]
     Indication: PRODUCT USED FOR UNKNOWN INDICATION
     Dosage: AT BEDTIME AS NEEDED
     Route: 048

REACTIONS (4)
  - COLITIS [None]
  - ABDOMINAL PAIN UPPER [None]
  - MIGRAINE [None]
  - DIARRHOEA [None]
